FAERS Safety Report 20744572 (Version 1)
Quarter: 2022Q2

REPORT INFORMATION
  Report Type: Report from Study
  Country: DE (occurrence: DE)
  Receive Date: 20220425
  Receipt Date: 20220425
  Transmission Date: 20220721
  Serious: Yes (Death)
  Sender: FDA-Public Use
  Company Number: DE-BAYER-2022A058885

PATIENT
  Age: 62 Year
  Sex: Female

DRUGS (7)
  1. ADEMPAS [Suspect]
     Active Substance: RIOCIGUAT
     Indication: Pulmonary hypertension
     Dosage: 1.0 MG, TID
     Route: 048
     Dates: start: 20220210
  2. MARCUMAR [Concomitant]
     Active Substance: PHENPROCOUMON
     Dosage: UNK UNK, PRN
  3. TORSEMIDE [Concomitant]
     Active Substance: TORSEMIDE
     Dosage: 10 MG, OM
  4. MAPROTILINE [Concomitant]
     Active Substance: MAPROTILINE
     Dosage: 25 MG, HS
  5. FLUOXETINE HYDROCHLORIDE [Concomitant]
     Active Substance: FLUOXETINE HYDROCHLORIDE
     Dosage: 20 MG, OM
  6. ACLIDINIUM BROMIDE [Concomitant]
     Active Substance: ACLIDINIUM BROMIDE
     Dosage: 2-0-2 HUB
     Route: 055
  7. OXYGEN [Concomitant]
     Active Substance: OXYGEN
     Dosage: 5L/MIN 24 HOURS

REACTIONS (1)
  - Death [Fatal]

NARRATIVE: CASE EVENT DATE: 20220412
